FAERS Safety Report 19855290 (Version 1)
Quarter: 2021Q3

REPORT INFORMATION
  Report Type: Spontaneous
  Country: US (occurrence: US)
  Receive Date: 20210916
  Receipt Date: 20210916
  Transmission Date: 20211014
  Serious: No
  Sender: FDA-Public Use
  Company Number: None

PATIENT
  Age: 67 Year
  Sex: Male

DRUGS (1)
  1. EVEROLIMUS TAB 2.5MG [Suspect]
     Active Substance: EVEROLIMUS
     Route: 048
     Dates: start: 20210612

REACTIONS (6)
  - Skin burning sensation [None]
  - Dermatitis contact [None]
  - Stomatitis [None]
  - Skin ulcer [None]
  - Skin wrinkling [None]
  - Skin exfoliation [None]

NARRATIVE: CASE EVENT DATE: 20210916
